FAERS Safety Report 13012395 (Version 1)
Quarter: 2016Q4

REPORT INFORMATION
  Report Type: Spontaneous
  Country: US (occurrence: US)
  Receive Date: 20161208
  Receipt Date: 20161208
  Transmission Date: 20170207
  Serious: No
  Sender: FDA-Public Use
  Company Number: None

PATIENT
  Sex: Female

DRUGS (1)
  1. SERTRALINE HCL [Suspect]
     Active Substance: SERTRALINE HYDROCHLORIDE

REACTIONS (5)
  - Wrong drug administered [None]
  - Dizziness [None]
  - Diarrhoea [None]
  - Drug dispensing error [None]
  - Headache [None]

NARRATIVE: CASE EVENT DATE: 2016
